FAERS Safety Report 7070472-5 (Version None)
Quarter: 2010Q4

REPORT INFORMATION
  Report Type: 
  Country: None (occurrence: None)
  Receive Date: 20101028
  Receipt Date: 20101028
  Transmission Date: 20110411
  Serious: Yes (Disabling, Other)
  Sender: FDA-Public Use
  Company Number: None

PATIENT
  Age: 72 Year
  Weight: 107.9561 kg

DRUGS (5)
  1. AMIODARONE HCL [Suspect]
     Indication: ATRIAL FIBRILLATION
     Dosage: 400 MG 3X DAILY 200 MG 2X DAILY
     Dates: start: 20091215, end: 20100107
  2. AMIODARONE HCL [Suspect]
     Indication: HEART RATE
     Dosage: 400 MG 3X DAILY 200 MG 2X DAILY
     Dates: start: 20091215, end: 20100107
  3. AMIODARONE HCL [Suspect]
     Indication: ATRIAL FIBRILLATION
     Dosage: 400 MG 3X DAILY 200 MG 2X DAILY
     Dates: start: 20100107, end: 20100503
  4. AMIODARONE HCL [Suspect]
     Indication: HEART RATE
     Dosage: 400 MG 3X DAILY 200 MG 2X DAILY
     Dates: start: 20100107, end: 20100503
  5. UNKNOWN [Concomitant]

REACTIONS (8)
  - DEPRESSION [None]
  - DIZZINESS [None]
  - HYPERHIDROSIS [None]
  - PARAESTHESIA [None]
  - PHOTOPHOBIA [None]
  - TEMPERATURE INTOLERANCE [None]
  - VISUAL ACUITY REDUCED [None]
  - VISUAL IMPAIRMENT [None]
